FAERS Safety Report 21578393 (Version 1)
Quarter: 2022Q4

REPORT INFORMATION
  Report Type: Report from Study
  Country: US (occurrence: US)
  Receive Date: 20221110
  Receipt Date: 20221110
  Transmission Date: 20230112
  Serious: No
  Sender: FDA-Public Use
  Company Number: US-ABBVIE-22K-163-4510219-00

PATIENT
  Sex: Female

DRUGS (1)
  1. HUMIRA [Suspect]
     Active Substance: ADALIMUMAB
     Indication: Juvenile idiopathic arthritis
     Dosage: CF SYRINGE
     Route: 058

REACTIONS (6)
  - COVID-19 [Recovered/Resolved]
  - Injection site erythema [Unknown]
  - Injection site rash [Unknown]
  - Rheumatoid factor increased [Recovered/Resolved]
  - Injection site papule [Unknown]
  - Juvenile idiopathic arthritis [Unknown]
